FAERS Safety Report 8872565 (Version 1)
Quarter: 2012Q4

REPORT INFORMATION
  Report Type: 
  Country: US (occurrence: US)
  Receive Date: 20121026
  Receipt Date: 20121026
  Transmission Date: 20130627
  Serious: No
  Sender: FDA-Public Use
  Company Number: US-AMGEN-USASP2012051436

PATIENT
  Age: 54 Year
  Sex: Female
  Weight: 106.58 kg

DRUGS (9)
  1. ENBREL [Suspect]
     Indication: RHEUMATOID ARTHRITIS
     Dosage: 50 mg, qwk
     Route: 058
  2. METHOTREXATE [Concomitant]
     Dosage: 2.5 mg, UNK
  3. PREDNISONE [Concomitant]
     Dosage: 1 mg, UNK
  4. MIMVEY [Concomitant]
     Dosage: 1-0.5 mg
  5. HYDROCODONE BITARTRATE AND ACETAMINOPHEN [Concomitant]
     Dosage: 5-500 mg
  6. VITAMIN D /00107901/ [Concomitant]
     Dosage: 1000 unit, UNK
  7. CALCIUM [Concomitant]
     Dosage: 500 UNK, UNK
  8. FOLIC ACID [Concomitant]
     Dosage: UNK
  9. LEVOXYL [Concomitant]
     Dosage: 100 mug, UNK

REACTIONS (1)
  - Drug effect decreased [Unknown]
